FAERS Safety Report 6734739-X (Version None)
Quarter: 2010Q2

REPORT INFORMATION
  Report Type: 
  Country: None (occurrence: None)
  Receive Date: 20100519
  Receipt Date: 20100519
  Transmission Date: 20101027
  Serious: Yes (Other)
  Sender: FDA-Public Use
  Company Number: None

PATIENT
  Age: 54 Year
  Sex: Male
  Weight: 68.0396 kg

DRUGS (1)
  1. FLOMAX [Suspect]
     Indication: URINE FLOW DECREASED
     Dosage: 0.4 MG 1XDAILY ORAL
     Route: 048
     Dates: start: 20100307, end: 20100309

REACTIONS (3)
  - DIZZINESS [None]
  - HYPERHIDROSIS [None]
  - PRESYNCOPE [None]
